FAERS Safety Report 6950877 (Version 2)
Quarter: 2019Q3

REPORT INFORMATION
  Report Type: Spontaneous
  Country: NL (occurrence: NO)
  Receive Date: 20090325
  Receipt Date: 20190821
  Transmission Date: 20191005
  Serious: Yes (Death)
  Sender: FDA-Public Use
  Company Number: NL-PFIZER INC-2006040877

PATIENT
  Age: 66 Year
  Sex: Male

DRUGS (6)
  1. THEO-DUR [Concomitant]
     Active Substance: THEOPHYLLINE ANHYDROUS
     Dosage: 300 MG, DAILY
     Route: 048
  2. ATROVENT [Concomitant]
     Active Substance: IPRATROPIUM BROMIDE
     Dosage: 250 UG, 4X/DAY
     Route: 055
  3. DIURAL [Concomitant]
     Active Substance: FUROSEMIDE
     Indication: CARDIAC FAILURE
     Dosage: 40 MG, DAILY
     Route: 048
  4. LYRICA [Suspect]
     Active Substance: PREGABALIN
     Indication: NEUROPATHY PERIPHERAL
     Dosage: 150 MG, DAILY
     Route: 048
     Dates: start: 20060304, end: 20060304
  5. LYRICA [Suspect]
     Active Substance: PREGABALIN
     Indication: NEURALGIA
  6. SALMETEROL [Concomitant]
     Active Substance: SALMETEROL
     Indication: CHRONIC OBSTRUCTIVE PULMONARY DISEASE
     Dosage: 1 DF, 2X/DAY
     Route: 055

REACTIONS (1)
  - Sudden death [Fatal]

NARRATIVE: CASE EVENT DATE: 20060306
